FAERS Safety Report 8622110-5 (Version None)
Quarter: 2012Q3

REPORT INFORMATION
  Report Type: 
  Country: None (occurrence: None)
  Receive Date: 20120826
  Receipt Date: 20120820
  Transmission Date: 20120928
  Serious: No
  Sender: FDA-Public Use
  Company Number: US-B.I. PHARMACEUTICALS,INC./RIDGEFIELD-2012-BP-20273BP

PATIENT
  Sex: Female

DRUGS (10)
  1. CLARITIN [Concomitant]
     Route: 048
  2. XANAX [Concomitant]
     Route: 048
  3. LORTAB [Concomitant]
     Indication: PAIN
     Route: 048
  4. SPIRIVA [Suspect]
     Indication: BRONCHITIS CHRONIC
     Dosage: 18 MCG
     Route: 055
     Dates: start: 20120720
  5. POTASSIUM [Concomitant]
     Route: 048
  6. COQ10 [Concomitant]
     Route: 048
  7. SPIRIVA [Suspect]
     Route: 048
     Dates: start: 20120820, end: 20120820
  8. CELEXA [Concomitant]
     Indication: DEPRESSION
     Route: 048
  9. AMLODIPINE [Concomitant]
     Indication: HYPERTENSION
     Route: 048
  10. FISH OIL [Concomitant]
     Route: 048

REACTIONS (1)
  - INCORRECT ROUTE OF DRUG ADMINISTRATION [None]
